FAERS Safety Report 7125513-3 (Version None)
Quarter: 2010Q4

REPORT INFORMATION
  Report Type: 
  Country: None (occurrence: None)
  Receive Date: 20101129
  Receipt Date: 20101115
  Transmission Date: 20110411
  Serious: Yes (Death)
  Sender: FDA-Public Use
  Company Number: JP-ABBOTT-10P-087-0682434-00

PATIENT
  Age: 84 Year
  Sex: Male
  Weight: 72 kg

DRUGS (7)
  1. LEUPROLIDE ACETATE [Suspect]
     Indication: PROSTATE CANCER STAGE III
     Route: 058
     Dates: start: 20071225, end: 20090519
  2. TAKEPRON [Concomitant]
     Indication: GASTRIC CANCER
     Route: 048
     Dates: start: 20071225, end: 20090713
  3. CYANOCOBALAMIN [Concomitant]
     Indication: NEUROPATHY PERIPHERAL
     Route: 048
  4. NORVASC [Concomitant]
     Indication: HYPERTENSION
     Route: 048
     Dates: end: 20090713
  5. MICARDIS [Concomitant]
     Indication: HYPERTENSION
     Route: 048
     Dates: end: 20090713
  6. MAGMITT [Concomitant]
     Indication: GASTRIC CANCER
     Route: 048
     Dates: end: 20090713
  7. BICALUTAMIDE [Concomitant]
     Indication: PROSTATE CANCER STAGE III
     Route: 048
     Dates: start: 20090421, end: 20090713

REACTIONS (2)
  - RENAL FAILURE ACUTE [None]
  - URINARY TRACT DISORDER [None]
